FAERS Safety Report 4832253-X (Version None)
Quarter: 2005Q4

REPORT INFORMATION
  Report Type: 
  Country: None (occurrence: None)
  Receive Date: 20051118
  Receipt Date: 20050930
  Transmission Date: 20060501
  Serious: Yes (Hospitalization)
  Sender: FDA-Public Use
  Company Number: US-MERCK-0510USA00721

PATIENT
  Age: 70 Year
  Sex: Female
  Weight: 61 kg

DRUGS (23)
  1. VIOXX [Suspect]
     Indication: ARTHRITIS
     Route: 048
     Dates: start: 20020227, end: 20040916
  2. ALLEGRA [Concomitant]
     Route: 065
  3. AMBIEN [Concomitant]
     Route: 065
  4. ARICEPT [Concomitant]
     Route: 065
  5. BACLOFEN [Concomitant]
     Route: 065
  6. DETROL LA [Concomitant]
     Route: 065
  7. DITROPAN XL [Concomitant]
     Route: 065
  8. EFFEXOR [Concomitant]
     Route: 065
  9. LEXAPRO [Concomitant]
     Route: 065
  10. NEXIUM [Concomitant]
     Route: 065
  11. PRAVACHOL [Concomitant]
     Route: 065
  12. PREMARIN [Concomitant]
     Route: 065
  13. RISPERDAL [Concomitant]
     Route: 065
  14. SYNTHROID [Concomitant]
     Route: 065
  15. ZANAFLEX [Concomitant]
     Route: 065
  16. ZOCOR [Concomitant]
     Route: 065
  17. ZYPREXA [Concomitant]
     Route: 065
  18. RESTORIL [Concomitant]
     Route: 065
  19. [THERAPY UNSPECIFIED] [Concomitant]
     Route: 065
  20. AMITRIPTYLINE HYDROCHLORIDE [Concomitant]
     Route: 065
  21. HYOSCYAMINE SULFATE [Concomitant]
     Route: 065
  22. TEMAZEPAM [Concomitant]
     Route: 065
  23. HYDROXYZINE HYDROCHLORIDE [Concomitant]
     Route: 065

REACTIONS (1)
  - MYOCARDIAL INFARCTION [None]
